FAERS Safety Report 13516017 (Version 10)
Quarter: 2018Q1

REPORT INFORMATION
  Report Type: Spontaneous
  Country: JP (occurrence: JP)
  Receive Date: 20170505
  Receipt Date: 20180119
  Transmission Date: 20180508
  Serious: Yes (Death, Life-Threatening, Hospitalization, Other)
  Sender: FDA-Public Use
  Company Number: JP-009507513-1704JPN002759J

PATIENT
  Age: 66 Year
  Sex: Male
  Weight: 61 kg

DRUGS (16)
  1. TAKECAB [Concomitant]
     Active Substance: VONOPRAZAN FUMURATE
     Dosage: 20 MG, QD
     Route: 048
  2. KEYTRUDA [Suspect]
     Active Substance: PEMBROLIZUMAB
     Indication: LUNG ADENOCARCINOMA STAGE IV
     Dosage: 200 MG, Q3W
     Route: 041
     Dates: start: 20170421, end: 2017
  3. FEBURIC [Concomitant]
     Active Substance: FEBUXOSTAT
     Dosage: 20 MG, QD
     Route: 048
  4. MAGNESIUM OXIDE. [Concomitant]
     Active Substance: MAGNESIUM OXIDE
     Dosage: 500 MG, TID
     Route: 048
  5. TENELIA [Concomitant]
     Active Substance: TENELIGLIPTIN
     Dosage: 20 MG, QD
     Route: 048
  6. BISOPROLOL [Concomitant]
     Active Substance: BISOPROLOL
     Dosage: 2.5 MG, QD
     Route: 048
  7. BAKTAR [Concomitant]
     Active Substance: SULFAMETHOXAZOLE\TRIMETHOPRIM
     Dosage: UNK, QD
     Route: 048
  8. LINEZOLID. [Concomitant]
     Active Substance: LINEZOLID
     Indication: STEVENS-JOHNSON SYNDROME
     Dosage: 600 MG, BID
     Route: 051
     Dates: start: 20170602, end: 20170612
  9. ISOBIDE [Concomitant]
     Active Substance: ISOSORBIDE
     Dosage: 90 ML, TID
     Route: 048
  10. DECADRON [Concomitant]
     Active Substance: DEXAMETHASONE
     Indication: METASTASES TO CENTRAL NERVOUS SYSTEM
     Dosage: 0.5 MG, BID
     Route: 048
     Dates: end: 20170426
  11. TAZOBACTAM SODIUM_PIPERACILLIN SODIUM [Concomitant]
     Indication: STEVENS-JOHNSON SYNDROME
     Dosage: 4.5 G, TID
     Route: 051
     Dates: start: 20170531, end: 20170602
  12. PREDNISOLONE. [Concomitant]
     Active Substance: PREDNISOLONE
     Indication: STEVENS-JOHNSON SYNDROME
     Dosage: 60 MG, QD
     Route: 051
     Dates: start: 20170529, end: 20170612
  13. ALFACALCIDOL [Concomitant]
     Active Substance: ALFACALCIDOL
     Dosage: 1 MICROGRAM, UNK
     Route: 048
  14. KENKETU GLOVENIN-I [Concomitant]
     Active Substance: HUMAN IMMUNOGLOBULIN G
     Indication: STEVENS-JOHNSON SYNDROME
     Dosage: 1 IU, 5 TIMES PER DAY
     Route: 051
     Dates: start: 20170529, end: 20170602
  15. PREDNISOLONE. [Concomitant]
     Active Substance: PREDNISOLONE
     Dosage: 50 MG, QD
     Route: 051
     Dates: start: 20170613, end: 20170615
  16. ALEVIATIN [Concomitant]
     Active Substance: PHENYTOIN SODIUM
     Dosage: 100 MG, TID
     Route: 048

REACTIONS (5)
  - Malignant neoplasm progression [Fatal]
  - Ascites [Unknown]
  - Metastases to peritoneum [Unknown]
  - Toxic epidermal necrolysis [Unknown]
  - Ileus paralytic [Unknown]

NARRATIVE: CASE EVENT DATE: 20170529
